FAERS Safety Report 18959677 (Version 4)
Quarter: 2021Q2

REPORT INFORMATION
  Report Type: Report from Study
  Country: GB (occurrence: GB)
  Receive Date: 20210302
  Receipt Date: 20210421
  Transmission Date: 20210717
  Serious: Yes (Death, Hospitalization)
  Sender: FDA-Public Use
  Company Number: GB-JNJFOC-A-NJ2019-189529

PATIENT
  Age: 39 Year
  Sex: Female

DRUGS (2)
  1. OXYGEN. [Concomitant]
     Active Substance: OXYGEN
     Dosage: UNK
     Dates: start: 2019
  2. VENTAVIS [Suspect]
     Active Substance: ILOPROST
     Indication: PULMONARY ARTERIAL HYPERTENSION
     Dosage: DRUG DOSAGE FORM: 154
     Route: 055
     Dates: start: 20190111, end: 20210129

REACTIONS (7)
  - Death [Fatal]
  - Drug dose omission by device [Recovered/Resolved]
  - Device use error [Unknown]
  - Inappropriate schedule of product administration [Unknown]
  - Drug delivery system malfunction [Unknown]
  - Product dose omission issue [Unknown]
  - Hospitalisation [Unknown]

NARRATIVE: CASE EVENT DATE: 20190211
